FAERS Safety Report 6519278-3 (Version None)
Quarter: 2009Q4

REPORT INFORMATION
  Report Type: 
  Country: None (occurrence: None)
  Receive Date: 20091228
  Receipt Date: 20091214
  Transmission Date: 20100525
  Serious: Yes (Hospitalization, Other)
  Sender: FDA-Public Use
  Company Number: FI-PFIZER INC-2008150309

PATIENT
  Age: 61 Year

DRUGS (5)
  1. SALAZOPYRIN [Suspect]
     Indication: TUBERCULOSIS
     Dosage: 1000 MG, 2X/DAY
     Route: 048
  2. METHOTREXATE SODIUM [Suspect]
     Indication: PSORIATIC ARTHROPATHY
     Dosage: 15 MG, WEEKLY
     Route: 048
  3. REMICADE [Suspect]
     Indication: PSORIATIC ARTHROPATHY
     Dosage: 200 MG, UNK
     Route: 042
     Dates: start: 20071115, end: 20080103
  4. REMICADE [Suspect]
     Indication: RHEUMATOID ARTHRITIS
  5. OLMETEC [Concomitant]
     Indication: HYPERTONIA
     Dosage: 10 MG, 1X/DAY
     Route: 048

REACTIONS (2)
  - LYMPH NODE TUBERCULOSIS [None]
  - STAPHYLOCOCCAL ABSCESS [None]
